FAERS Safety Report 25758755 (Version 1)
Quarter: 2025Q3

REPORT INFORMATION
  Report Type: Spontaneous
  Country: US (occurrence: US)
  Receive Date: 20250904
  Receipt Date: 20250904
  Transmission Date: 20251020
  Serious: No
  Sender: JOHNSON AND JOHNSON
  Company Number: US-JNJFOC-20250902454

PATIENT

DRUGS (1)
  1. STELARA [Suspect]
     Active Substance: USTEKINUMAB
     Indication: Psoriasis
     Route: 058

REACTIONS (5)
  - Oral pain [Unknown]
  - Off label use [Unknown]
  - Biopsy [Unknown]
  - Injection site haemorrhage [Unknown]
  - Spinal stenosis [Unknown]
